FAERS Safety Report 9612208 (Version 2)
Quarter: 2013Q4

REPORT INFORMATION
  Report Type: Spontaneous
  Country: US (occurrence: None)
  Receive Date: 20131008
  Receipt Date: 20131125
  Transmission Date: 20140711
  Serious: Yes (Death)
  Sender: FDA-Public Use
  Company Number: CA13-0472

PATIENT
  Sex: Male

DRUGS (1)
  1. ENOXAPARIN SODIUM [Suspect]

REACTIONS (8)
  - Haemorrhage [None]
  - Drug ineffective [None]
  - Acute respiratory failure [None]
  - Pulmonary haemorrhage [None]
  - Chronic obstructive pulmonary disease [None]
  - Squamous cell carcinoma of lung [None]
  - Atrial fibrillation [None]
  - Hypertension [None]
